FAERS Safety Report 12610452 (Version 1)
Quarter: 2016Q3

REPORT INFORMATION
  Report Type: Spontaneous
  Country: US (occurrence: US)
  Receive Date: 20160801
  Receipt Date: 20160801
  Transmission Date: 20161109
  Serious: Yes (Other)
  Sender: FDA-Public Use
  Company Number: US-GALDERMA-US16004970

PATIENT
  Age: 35 Year
  Sex: Female

DRUGS (2)
  1. UNSPECIFIED PRENATAL VITAMINS [Concomitant]
     Indication: PREGNANCY
     Route: 048
     Dates: start: 201601
  2. ORACEA [Suspect]
     Active Substance: DOXYCYCLINE
     Indication: PRODUCT USED FOR UNKNOWN INDICATION
     Dosage: 40 MG
     Route: 048

REACTIONS (2)
  - Exposure via father [Recovered/Resolved]
  - Abortion spontaneous [Recovered/Resolved]

NARRATIVE: CASE EVENT DATE: 2016
